FAERS Safety Report 4952885-8 (Version None)
Quarter: 2006Q1

REPORT INFORMATION
  Report Type: 
  Country: None (occurrence: None)
  Receive Date: 20060324
  Receipt Date: 20060317
  Transmission Date: 20060701
  Serious: Yes (Hospitalization)
  Sender: FDA-Public Use
  Company Number: PHRM2006FR01070

PATIENT
  Age: 23 Year
  Sex: Female
  Weight: 101 kg

DRUGS (2)
  1. GLEEVEC [Suspect]
     Indication: CHRONIC MYELOID LEUKAEMIA
     Dosage: 400 MG DAILY
     Route: 048
     Dates: start: 20050115
  2. GLEEVEC [Suspect]
     Dosage: 600 MG DAILY
     Route: 048
     Dates: start: 20050627

REACTIONS (12)
  - ARTHRITIS [None]
  - BETA HAEMOLYTIC STREPTOCOCCAL INFECTION [None]
  - C-REACTIVE PROTEIN INCREASED [None]
  - ERYTHEMA NODOSUM [None]
  - GYNAECOLOGICAL CHLAMYDIA INFECTION [None]
  - INFLAMMATION [None]
  - MYALGIA [None]
  - NAUSEA [None]
  - OEDEMA [None]
  - PYREXIA [None]
  - RASH ERYTHEMATOUS [None]
  - WEIGHT INCREASED [None]
